FAERS Safety Report 16425190 (Version 5)
Quarter: 2019Q3

REPORT INFORMATION
  Report Type: Report from Study
  Country: None (occurrence: ES)
  Receive Date: 20190613
  Receipt Date: 20190928
  Transmission Date: 20191004
  Serious: Yes (Death, Hospitalization)
  Sender: FDA-Public Use
  Company Number: ES-ABBVIE-19S-144-2818801-00

PATIENT
  Age: 67 Year
  Sex: Male

DRUGS (1)
  1. DUODOPA [Suspect]
     Active Substance: CARBIDOPA\LEVODOPA
     Indication: PARKINSON^S DISEASE
     Route: 050
     Dates: start: 20141030

REACTIONS (7)
  - Oedema peripheral [Recovering/Resolving]
  - Dehydration [Unknown]
  - Myocardial infarction [Fatal]
  - Cardiac failure [Fatal]
  - General physical health deterioration [Unknown]
  - Emotional disorder [Unknown]
  - Dyspnoea [Not Recovered/Not Resolved]

NARRATIVE: CASE EVENT DATE: 201906
